FAERS Safety Report 6880986-6 (Version None)
Quarter: 2010Q2

REPORT INFORMATION
  Report Type: 
  Country: None (occurrence: None)
  Receive Date: 20100630
  Receipt Date: 20100202
  Transmission Date: 20101027
  Serious: Yes (Other)
  Sender: FDA-Public Use
  Company Number: 2010015974

PATIENT
  Age: 31 Year
  Sex: Female
  Weight: 61.2 kg

DRUGS (1)
  1. ZITHROMAX [Suspect]
     Indication: LOWER RESPIRATORY TRACT INFECTION
     Dosage: 500 MG, 1X/DAY, ORAL
     Route: 048
     Dates: start: 20040101, end: 20040101

REACTIONS (2)
  - DEAFNESS [None]
  - TINNITUS [None]
